FAERS Safety Report 8065428-X (Version None)
Quarter: 2011Q4

REPORT INFORMATION
  Report Type: 
  Country: None (occurrence: None)
  Receive Date: 20111221
  Receipt Date: 20110520
  Transmission Date: 20120403
  Serious: Yes (Other)
  Sender: FDA-Public Use
  Company Number: PHHY2011US37883

PATIENT
  Age: 68 Year
  Sex: Female
  Weight: 62.6 kg

DRUGS (6)
  1. VALCYTE [Concomitant]
  2. EXJADE [Suspect]
     Dosage: 500 MG, ORAL
     Route: 048
     Dates: end: 20110305
  3. NEXIUM [Concomitant]
  4. CIPROFLOXACIN [Concomitant]
  5. TOPROL-XL [Concomitant]
  6. BACTRIM [Concomitant]

REACTIONS (3)
  - WHITE BLOOD CELL COUNT DECREASED [None]
  - NAUSEA [None]
  - VOMITING [None]
